FAERS Safety Report 26148859 (Version 1)
Quarter: 2025Q4

REPORT INFORMATION
  Report Type: Spontaneous
  Country: US (occurrence: US)
  Receive Date: 20251212
  Receipt Date: 20251212
  Transmission Date: 20260118
  Serious: Yes (Other)
  Sender: ABBVIE
  Company Number: US-ABBVIE-6586124

PATIENT

DRUGS (2)
  1. RESTASIS [Suspect]
     Active Substance: CYCLOSPORINE
     Indication: Product used for unknown indication
     Route: 047
  2. XIIDRA [Concomitant]
     Active Substance: LIFITEGRAST
     Indication: Product used for unknown indication

REACTIONS (7)
  - Thyroidectomy [Unknown]
  - Drug ineffective [Unknown]
  - Eye irritation [Unknown]
  - Dry eye [Unknown]
  - Visual impairment [Unknown]
  - Lacrimation decreased [Unknown]
  - Ocular discomfort [Unknown]
